FAERS Safety Report 9693111 (Version 1)
Quarter: 2013Q4

REPORT INFORMATION
  Report Type: Spontaneous
  Country: US (occurrence: None)
  Receive Date: 20131115
  Receipt Date: 20131115
  Transmission Date: 20140711
  Serious: Yes (Hospitalization)
  Sender: FDA-Public Use
  Company Number: None

PATIENT
  Age: 7 Year
  Sex: Male

DRUGS (6)
  1. EES/SULFISOXAZOLE [Suspect]
     Dates: start: 20120730, end: 20120808
  2. SULFAMETHOXAZOLE AND TRIMETHOPRIM [Suspect]
     Dates: start: 20120604, end: 20120613
  3. CLARITIN [Concomitant]
  4. CHILDRENS TYLENOL [Concomitant]
  5. SINGULAIR [Concomitant]
  6. MULTIVITAMIN [Concomitant]

REACTIONS (4)
  - Drug-induced liver injury [None]
  - Jaundice [None]
  - Hepatitis fulminant [None]
  - Liver transplant [None]
